FAERS Safety Report 15276326 (Version 1)
Quarter: 2018Q3

REPORT INFORMATION
  Report Type: Spontaneous
  Country: US (occurrence: US)
  Receive Date: 20180728
  Receipt Date: 20180728
  Transmission Date: 20181010
  Serious: Yes (Disabling)
  Sender: FDA-Public Use
  Company Number: None

PATIENT
  Age: 61 Year
  Sex: Female
  Weight: 99 kg

DRUGS (13)
  1. CITRACAL [Concomitant]
     Active Substance: CALCIUM CITRATE
  2. MEGA RED [Concomitant]
  3. DILTIAZEM ER [Concomitant]
     Active Substance: DILTIAZEM
  4. ELIQUIS [Concomitant]
     Active Substance: APIXABAN
  5. ESTHER?C [Concomitant]
  6. MAGNESIUM [Concomitant]
     Active Substance: MAGNESIUM
  7. OSELTAMIVIR PHOSPHATE. [Suspect]
     Active Substance: OSELTAMIVIR PHOSPHATE
     Indication: INFLUENZA
     Dosage: ?          QUANTITY:1 CAPSULE(S);?
     Route: 048
     Dates: start: 20180216, end: 20180221
  8. SAM^S CLUB SENIOR MULTIVITAMIN [Concomitant]
  9. OSTEO?BI?FLEX [Concomitant]
  10. VITAMIN D3 [Concomitant]
     Active Substance: CHOLECALCIFEROL
  11. SYNTHROID [Concomitant]
     Active Substance: LEVOTHYROXINE SODIUM
  12. FLECAINIDE [Concomitant]
     Active Substance: FLECAINIDE
  13. CHORDYCEPS [Concomitant]

REACTIONS (3)
  - Anosmia [None]
  - Dysgeusia [None]
  - Quality of life decreased [None]

NARRATIVE: CASE EVENT DATE: 20180216
